FAERS Safety Report 14332764 (Version 2)
Quarter: 2018Q1

REPORT INFORMATION
  Report Type: Spontaneous
  Country: JP (occurrence: JP)
  Receive Date: 20171228
  Receipt Date: 20180208
  Transmission Date: 20180509
  Serious: Yes (Other)
  Sender: FDA-Public Use
  Company Number: JP-ELI_LILLY_AND_COMPANY-JP201712011602

PATIENT
  Age: 59 Year
  Sex: Male
  Weight: 61 kg

DRUGS (6)
  1. CYRAMZA [Suspect]
     Active Substance: RAMUCIRUMAB
     Indication: LUNG SQUAMOUS CELL CARCINOMA RECURRENT
     Dosage: 640 MG, CYCLICAL
     Route: 042
     Dates: start: 20171102, end: 20171102
  2. DOCETAXEL. [Suspect]
     Active Substance: DOCETAXEL
     Indication: LUNG SQUAMOUS CELL CARCINOMA RECURRENT
     Dosage: 100 MG, CYCLICAL
     Route: 042
     Dates: start: 20171102, end: 20171102
  3. G LASTA [Suspect]
     Active Substance: PEGFILGRASTIM
     Indication: PROPHYLAXIS
     Dosage: 3.6 MG, DAILY
     Route: 058
     Dates: start: 20171103, end: 20171103
  4. CYRAMZA [Suspect]
     Active Substance: RAMUCIRUMAB
     Dosage: 600 UNK, UNK
     Route: 042
     Dates: start: 20171123, end: 20171123
  5. DOCETAXEL. [Suspect]
     Active Substance: DOCETAXEL
     Dosage: 80 MG, CYCLICAL
     Route: 042
     Dates: start: 20171123, end: 20171123
  6. ZOSYN [Suspect]
     Active Substance: PIPERACILLIN SODIUM\TAZOBACTAM SODIUM
     Indication: FEBRILE NEUTROPENIA
     Dosage: 18 G, DAILY
     Route: 042

REACTIONS (4)
  - Febrile neutropenia [Recovered/Resolved]
  - Drug eruption [Recovered/Resolved]
  - Interstitial lung disease [Recovered/Resolved]
  - Pyrexia [Recovered/Resolved]

NARRATIVE: CASE EVENT DATE: 20171108
